FAERS Safety Report 8052791 (Version 4)
Quarter: 2014Q1

REPORT INFORMATION
  Report Type: Spontaneous
  Country: US (occurrence: US)
  Receive Date: 20110725
  Receipt Date: 20140303
  Transmission Date: 20141002
  Serious: Yes (Hospitalization)
  Sender: FDA-Public Use
  Company Number: US-GLAXOSMITHKLINE-A0882985A

PATIENT
  Age: 71 Year
  Sex: Female
  Weight: 71.4 kg

DRUGS (3)
  1. AVANDAMET [Suspect]
     Indication: DIABETES MELLITUS
     Route: 048
     Dates: start: 20061030, end: 20111019
  2. ASPIRIN [Concomitant]
  3. ENALAPRIL [Concomitant]

REACTIONS (4)
  - Cerebrovascular accident [Unknown]
  - Vomiting [Unknown]
  - Pain in extremity [Unknown]
  - Cardiovascular disorder [Unknown]
